FAERS Safety Report 8349266-6 (Version None)
Quarter: 2012Q2

REPORT INFORMATION
  Report Type: 
  Country: None (occurrence: None)
  Receive Date: 20120510
  Receipt Date: 20120504
  Transmission Date: 20120825
  Serious: Yes (Death)
  Sender: FDA-Public Use
  Company Number: PHHY2012FR037625

PATIENT
  Age: 84 Year
  Sex: Female
  Weight: 60 kg

DRUGS (4)
  1. RIVASTIGMINE [Suspect]
     Indication: DEMENTIA ALZHEIMER'S TYPE
     Dosage: 4.6 MG/24HOURS
     Route: 062
     Dates: start: 20111115
  2. PAROXETINE HYDROCHLORIDE [Concomitant]
     Indication: DEPRESSION
     Dosage: 20 MG DAILY
  3. OXAZEPAM [Concomitant]
     Indication: ANXIETY
     Dosage: 10 MG DAILY
  4. RIVASTIGMINE [Suspect]
     Dosage: 9.5 MG/24HOURS
     Route: 062

REACTIONS (1)
  - CARDIOPULMONARY FAILURE [None]
